FAERS Safety Report 9387100 (Version 1)
Quarter: 2013Q3

REPORT INFORMATION
  Report Type: Spontaneous
  Country: IT (occurrence: IT)
  Receive Date: 20130708
  Receipt Date: 20130708
  Transmission Date: 20140515
  Serious: Yes (Other)
  Sender: FDA-Public Use
  Company Number: PHHY2013IT071063

PATIENT
  Sex: Male

DRUGS (3)
  1. CARVEDILOL [Suspect]
  2. ISOSORBIDE DINITRATE [Suspect]
  3. ENALAPRIL [Suspect]

REACTIONS (2)
  - Renal failure chronic [Recovering/Resolving]
  - Orthostatic hypotension [Recovering/Resolving]
